FAERS Safety Report 5580044-7 (Version None)
Quarter: 2007Q4

REPORT INFORMATION
  Report Type: 
  Country: None (occurrence: None)
  Receive Date: 20071228
  Receipt Date: 20071217
  Transmission Date: 20080405
  Serious: Yes (Death, Life-Threatening)
  Sender: FDA-Public Use
  Company Number: 2007US003049

PATIENT
  Age: 65 Year
  Sex: Male

DRUGS (6)
  1. AMBISOME [Suspect]
     Indication: BRONCHOPULMONARY ASPERGILLOSIS
     Dosage: 125 MG, UID/QD, IV NOS
     Route: 042
     Dates: start: 20070824, end: 20070827
  2. SOLULACT (SODIUM LACTATE, CALCIUM CHLORIDE DIHYDRATE, POTASSIUM CHLORI [Concomitant]
  3. VITAJECT (THIAMINE HYDROCHLORIDE) [Concomitant]
  4. CARBENIN (BETAMIPRON, PANIPENEM) [Concomitant]
  5. PN TWIN (AMINO ACIDS NOS, ELECTROLYTES NOS, CARBOHYDRATES NOS) [Concomitant]
  6. ROPION (FLURBIPROFEN AXETIL) [Concomitant]

REACTIONS (5)
  - ANAEMIA [None]
  - HYPERCAPNIA [None]
  - HYPOKALAEMIA [None]
  - PLATELET COUNT DECREASED [None]
  - RENAL DISORDER [None]
